FAERS Safety Report 10411981 (Version 1)
Quarter: 2014Q3

REPORT INFORMATION
  Report Type: Spontaneous
  Country: DK (occurrence: DK)
  Receive Date: 20140827
  Receipt Date: 20140827
  Transmission Date: 20150326
  Serious: Yes (Other)
  Sender: FDA-Public Use
  Company Number: PHHY2014DK104293

PATIENT
  Age: 66 Year
  Sex: Female
  Weight: 60 kg

DRUGS (3)
  1. ZOMETA [Suspect]
     Active Substance: ZOLEDRONIC ACID
     Indication: RENAL CELL CARCINOMA
     Dosage: 4 MG, TIW
     Route: 042
     Dates: start: 20130319
  2. ALENDRONAT [Suspect]
     Active Substance: ALENDRONATE SODIUM
     Indication: RENAL CELL CARCINOMA
     Dosage: 70 MG, QW
     Route: 048
  3. VOTRIENT [Concomitant]
     Active Substance: PAZOPANIB HYDROCHLORIDE
     Dosage: UNK UKN, UNK
     Route: 048
     Dates: start: 201301

REACTIONS (4)
  - Debridement [Recovered/Resolved]
  - Mucosal erosion [Not Recovered/Not Resolved]
  - Osteonecrosis of jaw [Not Recovered/Not Resolved]
  - Pain [Not Recovered/Not Resolved]

NARRATIVE: CASE EVENT DATE: 20140316
